FAERS Safety Report 15427480 (Version 2)
Quarter: 2019Q1

REPORT INFORMATION
  Report Type: Report from Study
  Country: US (occurrence: US)
  Receive Date: 20180925
  Receipt Date: 20190329
  Transmission Date: 20190417
  Serious: Yes (Other)
  Sender: FDA-Public Use
  Company Number: US-SHIRE-US201836048

PATIENT
  Age: 61 Year
  Sex: Female

DRUGS (2)
  1. NATPARA (PARATHYROID HORMONE) [Suspect]
     Active Substance: PARATHYROID HORMONE
     Indication: PRODUCT USED FOR UNKNOWN INDICATION
     Dosage: 50 ?G, 1X/DAY:QD
     Route: 058
     Dates: start: 20180828
  2. NATPARA (PARATHYROID HORMONE) [Suspect]
     Active Substance: PARATHYROID HORMONE
     Dosage: 50 ?G, 1X/DAY:QD
     Route: 058
     Dates: start: 20180829, end: 20180917

REACTIONS (4)
  - Hyperhidrosis [Not Recovered/Not Resolved]
  - Loss of consciousness [Unknown]
  - Hypotension [Unknown]
  - Dysarthria [Unknown]

NARRATIVE: CASE EVENT DATE: 2018
